FAERS Safety Report 13227510 (Version 1)
Quarter: 2017Q1

REPORT INFORMATION
  Report Type: Spontaneous
  Country: US (occurrence: US)
  Receive Date: 20170213
  Receipt Date: 20170213
  Transmission Date: 20170428
  Serious: Yes (Hospitalization)
  Sender: FDA-Public Use
  Company Number: US-BAYER-2017-028000

PATIENT
  Sex: Male

DRUGS (1)
  1. BAYER LOW DOSE [Suspect]
     Active Substance: ASPIRIN
     Indication: ATRIOVENTRICULAR BLOCK
     Dosage: 4 DF, ONCE
     Route: 048
     Dates: start: 201602, end: 201602

REACTIONS (3)
  - Therapeutic response unexpected [None]
  - Product use issue [Unknown]
  - Product use issue [Unknown]

NARRATIVE: CASE EVENT DATE: 201702
